FAERS Safety Report 8196207-0 (Version None)
Quarter: 2012Q1

REPORT INFORMATION
  Report Type: 
  Country: None (occurrence: None)
  Receive Date: 20120307
  Receipt Date: 20120307
  Transmission Date: 20120608
  Serious: No
  Sender: FDA-Public Use
  Company Number: None

PATIENT
  Age: 55 Year
  Sex: Female
  Weight: 63.5036 kg

DRUGS (2)
  1. AMBIEN [Suspect]
     Indication: INSOMNIA
     Dosage: AMBIEN GENERIC II QHS P.O.
     Route: 048
     Dates: start: 20120216, end: 20120220
  2. AMBIEN [Suspect]
     Indication: DEPRESSION
     Dosage: AMBIEN GENERIC II QHS P.O.
     Route: 048
     Dates: start: 20120216, end: 20120220

REACTIONS (3)
  - INSOMNIA [None]
  - ABDOMINAL DISCOMFORT [None]
  - PRODUCT SUBSTITUTION ISSUE [None]
